FAERS Safety Report 9167790 (Version 3)
Quarter: 2013Q2

REPORT INFORMATION
  Report Type: Spontaneous
  Country: BR (occurrence: None)
  Receive Date: 20130305
  Receipt Date: 20130603
  Transmission Date: 20140414
  Serious: Yes (Other)
  Sender: FDA-Public Use
  Company Number: 2013-000574

PATIENT
  Sex: Female

DRUGS (1)
  1. ACTONEL [Suspect]
     Indication: OSTEOPOROSIS
     Route: 048
     Dates: start: 2007, end: 201301

REACTIONS (9)
  - Uterine leiomyoma [None]
  - Condition aggravated [None]
  - Procedural pain [None]
  - Abdominal distension [None]
  - Fatigue [None]
  - Adverse event [None]
  - Post procedural complication [None]
  - Nodule [None]
  - Muscle disorder [None]
